FAERS Safety Report 7638120-0 (Version None)
Quarter: 2011Q3

REPORT INFORMATION
  Report Type: 
  Country: None (occurrence: None)
  Receive Date: 20110722
  Receipt Date: 20110722
  Transmission Date: 20111222
  Serious: Yes (Hospitalization)
  Sender: FDA-Public Use
  Company Number: None

PATIENT
  Sex: Male
  Weight: 87.4 kg

DRUGS (1)
  1. TARCEVA [Suspect]
     Dosage: 150 MG

REACTIONS (6)
  - MALIGNANT PLEURAL EFFUSION [None]
  - CEREBROVASCULAR ACCIDENT [None]
  - ESCHERICHIA TEST POSITIVE [None]
  - PULMONARY EMBOLISM [None]
  - DISEASE PROGRESSION [None]
  - DEEP VEIN THROMBOSIS [None]
